FAERS Safety Report 6237788-3 (Version None)
Quarter: 2009Q2

REPORT INFORMATION
  Report Type: 
  Country: None (occurrence: None)
  Receive Date: 20090617
  Receipt Date: 20090608
  Transmission Date: 20091009
  Serious: Yes (Death, Other)
  Sender: FDA-Public Use
  Company Number: 292341

PATIENT
  Age: 92 Year
  Sex: Male
  Weight: 36.8 kg

DRUGS (2)
  1. VANCOMYCIN [Suspect]
     Indication: PNEUMONIA STAPHYLOCOCCAL
     Dosage: .5 G, TWICE PER DAY, INTRAVENOUS
     Route: 042
     Dates: start: 20090207, end: 20090208
  2. CEFEPIME [Concomitant]

REACTIONS (2)
  - BODY TEMPERATURE DECREASED [None]
  - RESPIRATORY FAILURE [None]
